FAERS Safety Report 4339247-1 (Version None)
Quarter: 2004Q2

REPORT INFORMATION
  Report Type: 
  Country: None (occurrence: None)
  Receive Date: 20040414
  Receipt Date: 20040414
  Transmission Date: 20050107
  Serious: Yes (Other)
  Sender: FDA-Public Use
  Company Number: None

PATIENT
  Sex: Female
  Weight: 95.2554 kg

DRUGS (1)
  1. SAV-ON OSCO BY ALBERTSONS GENERIC LICE SHAMPOO [Suspect]
     Indication: LICE INFESTATION
     Dosage: MAXIMUM STRENGTH USED ONCE
     Dates: start: 20040313, end: 20040313

REACTIONS (3)
  - PHARMACEUTICAL PRODUCT COMPLAINT [None]
  - PRURITUS [None]
  - SWELLING [None]
